FAERS Safety Report 9036747 (Version 1)
Quarter: 2013Q1

REPORT INFORMATION
  Report Type: Spontaneous
  Country: US (occurrence: None)
  Receive Date: 20130123
  Receipt Date: 20130123
  Transmission Date: 20140127
  Serious: Yes (Life-Threatening)
  Sender: FDA-Public Use
  Company Number: None

PATIENT
  Age: 66 Year
  Sex: Female
  Weight: 111.59 kg

DRUGS (1)
  1. CLONAZEPAM [Suspect]

REACTIONS (3)
  - Amnesia [None]
  - Pain [None]
  - Treatment noncompliance [None]
